FAERS Safety Report 4673751-1 (Version None)
Quarter: 2005Q2

REPORT INFORMATION
  Report Type: 
  Country: None (occurrence: None)
  Receive Date: 20050524
  Receipt Date: 20050512
  Transmission Date: 20051028
  Serious: Yes (Life-Threatening, Hospitalization, Other)
  Sender: FDA-Public Use
  Company Number: 2004005976

PATIENT
  Age: 29 Year
  Sex: Male
  Weight: 74 kg

DRUGS (8)
  1. VFEND [Suspect]
     Indication: BRONCHOPULMONARY ASPERGILLOSIS
     Dosage: INTRAVENOUS
     Route: 042
     Dates: start: 20031210, end: 20031221
  2. LOXAPINE SUCCINATE [Concomitant]
  3. MIDAZOLAM [Concomitant]
  4. FENTANYL [Concomitant]
  5. CEFTAZIDIME [Concomitant]
  6. ACETALOZAMIDE [Concomitant]
  7. OMEPRAZOLE [Concomitant]
  8. CLINOMEL [Concomitant]

REACTIONS (4)
  - ACUTE PULMONARY OEDEMA [None]
  - DIALYSIS [None]
  - FLUID OVERLOAD [None]
  - RENAL FAILURE ACUTE [None]
